FAERS Safety Report 23984621 (Version 1)
Quarter: 2024Q2

REPORT INFORMATION
  Report Type: Spontaneous
  Country: US (occurrence: US)
  Receive Date: 20240618
  Receipt Date: 20240618
  Transmission Date: 20240716
  Serious: Yes (Life-Threatening, Other)
  Sender: FDA-Public Use
  Company Number: US-INTRA-CELLULAR THERAPIES, INC.-2024ICT00940

PATIENT
  Age: 24 Year

DRUGS (8)
  1. LUMATEPERONE [Suspect]
     Active Substance: LUMATEPERONE
     Indication: Bipolar II disorder
     Dosage: 42 MG
  2. LUMATEPERONE [Suspect]
     Active Substance: LUMATEPERONE
     Dosage: 21 MG, 1X/DAY
  3. LURASIDONE [Suspect]
     Active Substance: LURASIDONE
     Indication: Bipolar II disorder
     Dosage: 20 MG, 1X/DAY
  4. CARIPRAZINE [Suspect]
     Active Substance: CARIPRAZINE
     Indication: Bipolar II disorder
     Dosage: 1.5 MG
  5. UNSPECIFIED INGREDIENT [Concomitant]
     Active Substance: UNSPECIFIED INGREDIENT
     Indication: Asthma
  6. 2 LONG-ACTING BRONCHODILATORS [Concomitant]
     Indication: Asthma
  7. LEUKOTRIENE INHIBITOR [Concomitant]
     Indication: Asthma
     Dosage: UNK, 1X/DAY
  8. MONOCLONAL ANTIBODIES, GRANULOCYTE [Concomitant]
     Dosage: UNK, 2X/MONTH

REACTIONS (2)
  - Asthma [Recovering/Resolving]
  - Suicidal ideation [Recovering/Resolving]
